FAERS Safety Report 7584138-6 (Version None)
Quarter: 2011Q2

REPORT INFORMATION
  Report Type: 
  Country: None (occurrence: None)
  Receive Date: 20110630
  Receipt Date: 20110627
  Transmission Date: 20111010
  Serious: Yes (Other)
  Sender: FDA-Public Use
  Company Number: BR-PFIZER INC-2011142615

PATIENT
  Age: 31 Year
  Sex: Female
  Weight: 82 kg

DRUGS (4)
  1. MEDROXYPROGESTERONE ACETATE [Suspect]
     Indication: MALAISE
  2. MEDROXYPROGESTERONE ACETATE [Suspect]
     Indication: MENSTRUATION DELAYED
     Dosage: 1 TABLET PER DAY
     Route: 048
     Dates: start: 20110620, end: 20110622
  3. MEDROXYPROGESTERONE ACETATE [Suspect]
     Indication: HORMONE LEVEL ABNORMAL
  4. MEDROXYPROGESTERONE ACETATE [Suspect]
     Indication: PELVIC PAIN

REACTIONS (2)
  - BLIGHTED OVUM [None]
  - VAGINAL HAEMORRHAGE [None]
